FAERS Safety Report 13373158 (Version 1)
Quarter: 2017Q1

REPORT INFORMATION
  Report Type: Spontaneous
  Country: US (occurrence: US)
  Receive Date: 20170327
  Receipt Date: 20170327
  Transmission Date: 20170429
  Serious: No
  Sender: FDA-Public Use
  Company Number: US-GLAXOSMITHKLINE-US2017041868

PATIENT
  Age: 81 Year
  Sex: Female

DRUGS (2)
  1. ADVAIR DISKUS [Suspect]
     Active Substance: FLUTICASONE PROPIONATE\SALMETEROL XINAFOATE
     Indication: BRONCHITIS
     Dosage: 2 PUFF(S), BID
     Route: 055
     Dates: start: 20170316
  2. ADVAIR DISKUS [Suspect]
     Active Substance: FLUTICASONE PROPIONATE\SALMETEROL XINAFOATE
     Indication: ASTHMA
     Dosage: 1 PUFF(S), BID
     Route: 055
     Dates: start: 20170316

REACTIONS (4)
  - Drug prescribing error [Unknown]
  - Cough [Not Recovered/Not Resolved]
  - Overdose [Unknown]
  - Device use error [Unknown]

NARRATIVE: CASE EVENT DATE: 20170316
